FAERS Safety Report 8365427-4 (Version None)
Quarter: 2012Q2

REPORT INFORMATION
  Report Type: 
  Country: None (occurrence: None)
  Receive Date: 20120516
  Receipt Date: 20120503
  Transmission Date: 20120825
  Serious: No
  Sender: FDA-Public Use
  Company Number: US-ASTRAZENECA-2012SE28755

PATIENT
  Age: 41 Year
  Sex: Female
  Weight: 102.5 kg

DRUGS (5)
  1. SEROQUEL [Suspect]
     Route: 048
  2. SEROQUEL [Suspect]
     Route: 048
  3. SEROQUEL [Suspect]
     Indication: BIPOLAR I DISORDER
     Route: 048
  4. SEROQUEL [Suspect]
     Indication: DEPRESSION
     Route: 048
  5. CLONAZEPAM [Concomitant]

REACTIONS (4)
  - DEPRESSION [None]
  - INSOMNIA [None]
  - MALAISE [None]
  - INTENTIONAL DRUG MISUSE [None]
